FAERS Safety Report 12228142 (Version 1)
Quarter: 2016Q1

REPORT INFORMATION
  Report Type: Spontaneous
  Country: US (occurrence: None)
  Receive Date: 20160330
  Receipt Date: 20160330
  Transmission Date: 20160526
  Serious: No
  Sender: FDA-Public Use
  Company Number: None

PATIENT
  Age: 45 Year
  Sex: Male
  Weight: 96.16 kg

DRUGS (1)
  1. IMATINIB, 400 MG SUN [Suspect]
     Active Substance: IMATINIB
     Indication: GASTRIC CANCER
     Route: 048
     Dates: start: 20160217, end: 20160302

REACTIONS (5)
  - Product substitution issue [None]
  - Asthenia [None]
  - Dizziness [None]
  - Nausea [None]
  - Fatigue [None]

NARRATIVE: CASE EVENT DATE: 20160217
